FAERS Safety Report 4473838-2 (Version None)
Quarter: 2004Q4

REPORT INFORMATION
  Report Type: 
  Country: None (occurrence: None)
  Receive Date: 20041008
  Receipt Date: 20041008
  Transmission Date: 20050328
  Serious: Yes (Other)
  Sender: FDA-Public Use
  Company Number: None

PATIENT
  Age: 52 Year
  Sex: Male
  Weight: 76 kg

DRUGS (1)
  1. DESIPRAMINE HCL [Suspect]
     Indication: SCHIZOAFFECTIVE DISORDER
     Dosage: 50 MG PO HS
     Route: 048
     Dates: start: 20040617, end: 20040708

REACTIONS (1)
  - PLATELET COUNT DECREASED [None]
